FAERS Safety Report 9657826 (Version 1)
Quarter: 2013Q4

REPORT INFORMATION
  Report Type: Spontaneous
  Country: GB (occurrence: GB)
  Receive Date: 20131030
  Receipt Date: 20131030
  Transmission Date: 20140711
  Serious: Yes (Other)
  Sender: FDA-Public Use
  Company Number: GB-BRISTOL-MYERS SQUIBB COMPANY-19696962

PATIENT
  Age: 45 Year
  Sex: Female

DRUGS (5)
  1. ABILIFY [Suspect]
  2. MIRTAZAPINE [Concomitant]
  3. DIAZEPAM [Concomitant]
     Indication: AGITATION
  4. CLONAZEPAM [Concomitant]
  5. FLUOXETINE [Concomitant]

REACTIONS (4)
  - Psychotic disorder [Unknown]
  - Depression [Unknown]
  - Anxiety [Unknown]
  - Off label use [Unknown]
